FAERS Safety Report 12836269 (Version 1)
Quarter: 2016Q4

REPORT INFORMATION
  Report Type: Spontaneous
  Country: DE (occurrence: DE)
  Receive Date: 20161011
  Receipt Date: 20161011
  Transmission Date: 20170207
  Serious: Yes (Death, Hospitalization)
  Sender: FDA-Public Use
  Company Number: DE-SA-2016SA185478

PATIENT
  Age: 66 Year
  Sex: Female

DRUGS (15)
  1. HEPARIN [Suspect]
     Active Substance: HEPARIN SODIUM
     Indication: ANTICOAGULANT THERAPY
     Dosage: DOSE:20000 UNIT(S)
     Route: 065
  2. HEPARIN [Suspect]
     Active Substance: HEPARIN SODIUM
     Indication: ANTICOAGULANT THERAPY
     Dosage: DOSE:40000 UNIT(S)
     Route: 065
  3. PROTAMINE SULFATE. [Suspect]
     Active Substance: PROTAMINE SULFATE
     Indication: PROCOAGULANT THERAPY
     Route: 065
  4. LOVENOX [Suspect]
     Active Substance: ENOXAPARIN SODIUM
     Indication: ANTICOAGULANT THERAPY
     Route: 058
  5. HEPARIN [Suspect]
     Active Substance: HEPARIN SODIUM
     Indication: ANTICOAGULANT THERAPY
     Dosage: DOSE:5000 UNIT(S)
     Route: 065
  6. HEPARIN [Suspect]
     Active Substance: HEPARIN SODIUM
     Indication: ANTICOAGULANT THERAPY
     Dosage: DOSE:1000 UNIT(S)
     Route: 065
  7. HEPARIN [Suspect]
     Active Substance: HEPARIN SODIUM
     Indication: ANTICOAGULANT THERAPY
     Dosage: DOSE:40000 UNIT(S)
     Route: 065
  8. PROTAMINE SULFATE. [Suspect]
     Active Substance: PROTAMINE SULFATE
     Indication: PROCOAGULANT THERAPY
     Route: 065
  9. PROTAMINE SULFATE. [Suspect]
     Active Substance: PROTAMINE SULFATE
     Indication: PROCOAGULANT THERAPY
     Route: 065
  10. PROTAMINE SULFATE. [Suspect]
     Active Substance: PROTAMINE SULFATE
     Indication: PROCOAGULANT THERAPY
     Route: 065
  11. HEPARIN [Suspect]
     Active Substance: HEPARIN SODIUM
     Indication: ANTICOAGULANT THERAPY
     Dosage: DOSE:40000 UNIT(S)
     Route: 065
  12. LOVENOX [Suspect]
     Active Substance: ENOXAPARIN SODIUM
     Indication: ANTICOAGULANT THERAPY
     Dosage: 70 60 MG X3
     Route: 058
  13. HEPARIN [Suspect]
     Active Substance: HEPARIN SODIUM
     Indication: ANTICOAGULANT THERAPY
     Dosage: DOSE:40000 UNIT(S)
     Route: 065
  14. HEPARIN [Suspect]
     Active Substance: HEPARIN SODIUM
     Indication: ANTICOAGULANT THERAPY
     Dosage: DOSE:5000 UNIT(S)
     Route: 065
  15. HUMALOG MIX75/25 [Suspect]
     Active Substance: INSULIN LISPRO
     Indication: DIABETES MELLITUS
     Route: 065

REACTIONS (13)
  - Thrombocytopenia [Recovering/Resolving]
  - Multiple organ dysfunction syndrome [Fatal]
  - Peripheral ischaemia [Not Recovered/Not Resolved]
  - Cardiac arrest [Recovering/Resolving]
  - Ventricular fibrillation [Recovered/Resolved]
  - Cardiogenic shock [Fatal]
  - Disseminated intravascular coagulation [Unknown]
  - Deep vein thrombosis [Not Recovered/Not Resolved]
  - Gangrene [Not Recovered/Not Resolved]
  - Haemorrhage [Unknown]
  - Hypotension [Recovered/Resolved]
  - Ventricular tachycardia [Recovered/Resolved]
  - Electrocardiogram ST segment elevation [Unknown]
